FAERS Safety Report 7121014-7 (Version None)
Quarter: 2010Q4

REPORT INFORMATION
  Report Type: 
  Country: None (occurrence: None)
  Receive Date: 20101124
  Receipt Date: 20101116
  Transmission Date: 20110411
  Serious: Yes (Hospitalization)
  Sender: FDA-Public Use
  Company Number: FR-SANOFI-AVENTIS-2010SA069609

PATIENT
  Age: 65 Year
  Sex: Male

DRUGS (5)
  1. PLAVIX [Suspect]
     Indication: MYOCARDIAL INFARCTION
     Route: 048
     Dates: start: 20100822, end: 20100823
  2. EFFIENT [Suspect]
     Indication: MYOCARDIAL INFARCTION
     Route: 048
     Dates: start: 20100823, end: 20100825
  3. NITROGLYCERIN [Concomitant]
     Dosage: DOSE:2 PUFF(S)
     Dates: start: 20100822, end: 20100822
  4. LOVENOX [Concomitant]
     Dates: start: 20100822
  5. ASPEGIC 1000 [Concomitant]
     Dates: start: 20100822

REACTIONS (2)
  - DERMATITIS EXFOLIATIVE [None]
  - PRURITUS [None]
